FAERS Safety Report 14343139 (Version 1)
Quarter: 2018Q1

REPORT INFORMATION
  Report Type: Spontaneous
  Country: US (occurrence: US)
  Receive Date: 20180102
  Receipt Date: 20180102
  Transmission Date: 20180509
  Serious: Yes (Other)
  Sender: FDA-Public Use
  Company Number: US-TEVA-2017-US-841583

PATIENT
  Sex: Female

DRUGS (3)
  1. ALBUTEROL. [Concomitant]
     Active Substance: ALBUTEROL
     Indication: HYPERTENSION
     Route: 065
  2. PROAIR RESPICLICK [Suspect]
     Active Substance: ALBUTEROL SULFATE
     Dates: start: 2017
  3. ATENOLOL. [Concomitant]
     Active Substance: ATENOLOL
     Indication: HYPERTENSION
     Route: 065

REACTIONS (7)
  - Stomatitis [Unknown]
  - Dry mouth [Unknown]
  - Swollen tongue [Unknown]
  - Urinary tract disorder [Unknown]
  - Tongue coated [Unknown]
  - Glossodynia [Unknown]
  - Feeling abnormal [Unknown]
